FAERS Safety Report 6964714-1 (Version None)
Quarter: 2010Q3

REPORT INFORMATION
  Report Type: 
  Country: None (occurrence: None)
  Receive Date: 20100903
  Receipt Date: 20100824
  Transmission Date: 20110219
  Serious: Yes (Other)
  Sender: FDA-Public Use
  Company Number: ID-JNJFOC-20100808669

PATIENT
  Age: 37 Year
  Sex: Female
  Weight: 48 kg

DRUGS (7)
  1. REMICADE [Suspect]
     Indication: PSORIATIC ARTHROPATHY
     Route: 042
  2. REMICADE [Suspect]
     Route: 042
  3. REMICADE [Suspect]
     Route: 042
  4. CELEBREX [Concomitant]
     Indication: ANALGESIC THERAPY
     Route: 048
  5. MEDROL [Concomitant]
     Indication: ANTIINFLAMMATORY THERAPY
     Route: 048
  6. METHOTREXATE [Concomitant]
     Indication: MUSCULOSKELETAL PAIN
     Route: 048
  7. FOLAVIT [Concomitant]
     Route: 048

REACTIONS (1)
  - PULMONARY TUBERCULOSIS [None]
